FAERS Safety Report 5426661-6 (Version None)
Quarter: 2007Q3

REPORT INFORMATION
  Report Type: 
  Country: None (occurrence: None)
  Receive Date: 20070827
  Receipt Date: 20070815
  Transmission Date: 20080115
  Serious: Yes (Hospitalization, Other)
  Sender: FDA-Public Use
  Company Number: US-PFIZER INC-2007067616

PATIENT
  Sex: Female

DRUGS (3)
  1. BEXTRA [Suspect]
     Indication: ARTHRALGIA
     Dates: start: 20040901, end: 20041123
  2. BEXTRA [Suspect]
     Indication: BACK PAIN
  3. BEXTRA [Suspect]
     Indication: OSTEOARTHRITIS

REACTIONS (3)
  - AMNESIA [None]
  - BIPOLAR I DISORDER [None]
  - CEREBROVASCULAR ACCIDENT [None]
